FAERS Safety Report 12465270 (Version 1)
Quarter: 2016Q2

REPORT INFORMATION
  Report Type: Report from Study
  Country: US (occurrence: US)
  Receive Date: 20160614
  Receipt Date: 20160614
  Transmission Date: 20160815
  Serious: Yes (Other)
  Sender: FDA-Public Use
  Company Number: US-GILEAD-2016-0218008

PATIENT
  Age: 56 Year
  Sex: Female

DRUGS (1)
  1. SOFOSBUVIR [Suspect]
     Active Substance: SOFOSBUVIR
     Indication: HEPATITIS C
     Dosage: 400 MG, UNK
     Route: 048
     Dates: start: 20160327

REACTIONS (7)
  - Dry skin [Unknown]
  - Hair texture abnormal [Unknown]
  - Visual impairment [Unknown]
  - Hypertension [Unknown]
  - Fatigue [Unknown]
  - Dry eye [Unknown]
  - Anaemia [Unknown]
